FAERS Safety Report 20031329 (Version 1)
Quarter: 2021Q4

REPORT INFORMATION
  Report Type: Spontaneous
  Country: AR (occurrence: AR)
  Receive Date: 20211103
  Receipt Date: 20211103
  Transmission Date: 20220304
  Serious: Yes (Other)
  Sender: FDA-Public Use
  Company Number: AR-UNITED THERAPEUTICS-UNT-2021-021784

PATIENT
  Age: 20 Year
  Sex: Female
  Weight: 55 kg

DRUGS (5)
  1. REMODULIN [Suspect]
     Active Substance: TREPROSTINIL
     Indication: Pulmonary arterial hypertension
     Dosage: UNK UNK, CONTINUING
     Route: 058
  2. REMODULIN [Suspect]
     Active Substance: TREPROSTINIL
     Dosage: UNK UNK, CONTINUING (REDUCING DOSE 4 NG/KG/MIN EVERY 3 H)
     Route: 058
  3. SPIRONOLACTONE [Concomitant]
     Active Substance: SPIRONOLACTONE
     Indication: Product used for unknown indication
     Dosage: UNK
     Route: 065
  4. ACENOCOUMAROL [Concomitant]
     Active Substance: ACENOCOUMAROL
     Indication: Anticoagulant therapy
     Dosage: UNK
     Route: 065
  5. MACITENTAN [Concomitant]
     Active Substance: MACITENTAN
     Indication: Pulmonary arterial hypertension
     Route: 065

REACTIONS (8)
  - Pulmonary arterial hypertension [Unknown]
  - Pericardial effusion [Recovered/Resolved]
  - Sinus tachycardia [Unknown]
  - Oedema peripheral [Unknown]
  - Subcutaneous drug absorption impaired [Unknown]
  - Infusion site pain [Unknown]
  - Infusion site reaction [Unknown]
  - Therapy non-responder [Unknown]
